FAERS Safety Report 12078713 (Version 5)
Quarter: 2016Q2

REPORT INFORMATION
  Report Type: Report from Study
  Country: US (occurrence: US)
  Receive Date: 20160216
  Receipt Date: 20160422
  Transmission Date: 20160815
  Serious: Yes (Other)
  Sender: FDA-Public Use
  Company Number: US-AMGEN-USASL2016016007

PATIENT
  Age: 78 Year
  Sex: Female

DRUGS (1)
  1. ENBREL [Suspect]
     Active Substance: ETANERCEPT
     Indication: RHEUMATOID ARTHRITIS
     Dosage: 50 MG, QWK
     Route: 065
     Dates: start: 20150930

REACTIONS (15)
  - Iron deficiency anaemia [Unknown]
  - Loss of consciousness [Unknown]
  - Hypoaesthesia [Unknown]
  - Pain in extremity [Recovering/Resolving]
  - Vocal cord inflammation [Unknown]
  - Urinary tract infection [Unknown]
  - Laceration [Recovered/Resolved]
  - Joint swelling [Unknown]
  - Spinal column stenosis [Unknown]
  - Neck pain [Recovering/Resolving]
  - Limb injury [Unknown]
  - Musculoskeletal pain [Recovering/Resolving]
  - Asthenia [Unknown]
  - Fall [Unknown]
  - Dysphagia [Unknown]

NARRATIVE: CASE EVENT DATE: 2015
